FAERS Safety Report 5941876-6 (Version None)
Quarter: 2008Q4

REPORT INFORMATION
  Report Type: 
  Country: None (occurrence: None)
  Receive Date: 20081031
  Receipt Date: 20081020
  Transmission Date: 20090506
  Serious: Yes (Hospitalization, Other)
  Sender: FDA-Public Use
  Company Number: 2008BI024331

PATIENT
  Sex: Female

DRUGS (1)
  1. TYSABRI [Suspect]
     Indication: MULTIPLE SCLEROSIS
     Dosage: 300 MG;QM;IV
     Route: 042
     Dates: start: 20070724

REACTIONS (5)
  - CONVULSION [None]
  - HYSTERECTOMY [None]
  - OPPORTUNISTIC INFECTION [None]
  - TREMOR [None]
  - WHITE BLOOD CELL COUNT INCREASED [None]
